FAERS Safety Report 6863517-6 (Version None)
Quarter: 2010Q3

REPORT INFORMATION
  Report Type: 
  Country: None (occurrence: None)
  Receive Date: 20100721
  Receipt Date: 20100709
  Transmission Date: 20110219
  Serious: Yes (Other)
  Sender: FDA-Public Use
  Company Number: CA-PFIZER INC-2010066765

PATIENT
  Age: 21 Year
  Sex: Male

DRUGS (2)
  1. ZELDOX [Suspect]
     Dosage: 160 MG, UNK
  2. LITHIUM [Concomitant]
     Dosage: UNK

REACTIONS (5)
  - APATHY [None]
  - DRUG INEFFECTIVE [None]
  - ELECTROCARDIOGRAM QT INTERVAL ABNORMAL [None]
  - FATIGUE [None]
  - HYPERSOMNIA [None]
